FAERS Safety Report 5305615-4 (Version None)
Quarter: 2007Q2

REPORT INFORMATION
  Report Type: 
  Country: None (occurrence: None)
  Receive Date: 20070419
  Receipt Date: 20070419
  Transmission Date: 20071010
  Serious: No
  Sender: FDA-Public Use
  Company Number: None

PATIENT
  Age: 33 Year
  Sex: Female
  Weight: 56.6996 kg

DRUGS (1)
  1. PROACTIVE SOLUTION     GUTHY-RENKER [Suspect]
     Indication: ACNE
     Dosage: BID  TOP
     Route: 061
     Dates: start: 20050705, end: 20050805

REACTIONS (5)
  - BLISTER [None]
  - BURNING SENSATION [None]
  - ERYTHEMA [None]
  - HAIR COLOUR CHANGES [None]
  - SKIN IRRITATION [None]
